FAERS Safety Report 7357112-2 (Version None)
Quarter: 2011Q1

REPORT INFORMATION
  Report Type: 
  Country: None (occurrence: None)
  Receive Date: 20110308
  Receipt Date: 20110221
  Transmission Date: 20110831
  Serious: Yes (Other)
  Sender: FDA-Public Use
  Company Number: 2010005471

PATIENT
  Age: 76 Year

DRUGS (6)
  1. VITAMINS (MULTIVITAMINS) [Concomitant]
  2. SAHNE (RETINOL) [Concomitant]
  3. LOPERAMIDE HCL [Concomitant]
  4. NEO-MEDROL (NEO-MEDROL) [Concomitant]
  5. TARCEVA [Suspect]
     Indication: NON-SMALL CELL LUNG CANCER
     Dosage: MG, ORAL
     Route: 048
  6. UREPEARL (UREA) [Concomitant]

REACTIONS (1)
  - FRACTURE [None]
